FAERS Safety Report 7226161-7 (Version None)
Quarter: 2011Q1

REPORT INFORMATION
  Report Type: 
  Country: None (occurrence: None)
  Receive Date: 20110114
  Receipt Date: 20110105
  Transmission Date: 20110831
  Serious: Yes (Other)
  Sender: FDA-Public Use
  Company Number: DE-BIOGENIDEC-2011BI000766

PATIENT
  Age: 41 Year
  Sex: Female
  Weight: 63 kg

DRUGS (1)
  1. AVONEX [Suspect]
     Indication: RELAPSING-REMITTING MULTIPLE SCLEROSIS
     Route: 030
     Dates: start: 20050115

REACTIONS (5)
  - MYOCARDIAL INFARCTION [None]
  - PANIC ATTACK [None]
  - HYPERTENSION [None]
  - INJECTION SITE PAIN [None]
  - AORTIC VALVE INCOMPETENCE [None]
